FAERS Safety Report 4420495-7 (Version None)
Quarter: 2004Q3

REPORT INFORMATION
  Report Type: 
  Country: None (occurrence: None)
  Receive Date: 20040809
  Receipt Date: 20040315
  Transmission Date: 20050211
  Serious: No
  Sender: FDA-Public Use
  Company Number: US-GLAXOSMITHKLINE-A0502888A

PATIENT
  Age: 28 Year
  Sex: Male

DRUGS (2)
  1. PAXIL [Suspect]
     Indication: PANIC DISORDER
     Dosage: 12.5MG ALTERNATE DAYS
     Route: 048
     Dates: start: 20030901
  2. KLONOPIN [Concomitant]

REACTIONS (10)
  - AMNESIA [None]
  - BRUXISM [None]
  - CONFUSIONAL STATE [None]
  - DISTURBANCE IN ATTENTION [None]
  - DIZZINESS [None]
  - HEADACHE [None]
  - HOT FLUSH [None]
  - NAUSEA [None]
  - PAIN [None]
  - SINUSITIS [None]
